FAERS Safety Report 20224188 (Version 2)
Quarter: 2022Q4

REPORT INFORMATION
  Report Type: Report from Study
  Country: CA (occurrence: CA)
  Receive Date: 20211223
  Receipt Date: 20221014
  Transmission Date: 20230113
  Serious: Yes (Other)
  Sender: FDA-Public Use
  Company Number: CA-TAKEDA-2021TUS081011

PATIENT
  Age: 78 Year
  Sex: Male

DRUGS (5)
  1. VEDOLIZUMAB [Suspect]
     Active Substance: VEDOLIZUMAB
     Indication: Crohn^s disease
     Dosage: 300 MILLIGRAM
     Route: 042
     Dates: start: 20210719, end: 20220813
  2. PREDNISONE [Concomitant]
     Active Substance: PREDNISONE
     Dosage: UNK
     Route: 042
     Dates: start: 20210621
  3. PREDNISONE [Concomitant]
     Active Substance: PREDNISONE
     Dosage: UNK
     Route: 048
     Dates: start: 20210623
  4. PREDNISONE [Concomitant]
     Active Substance: PREDNISONE
     Dosage: UNK
  5. SULFASALAZINE [Concomitant]
     Active Substance: SULFASALAZINE
     Indication: Arthralgia
     Dosage: UNK
     Route: 048

REACTIONS (1)
  - Crohn^s disease [Unknown]
